FAERS Safety Report 9361267 (Version 2)
Quarter: 2013Q3

REPORT INFORMATION
  Report Type: Spontaneous
  Country: JP (occurrence: JP)
  Receive Date: 20130621
  Receipt Date: 20130731
  Transmission Date: 20140515
  Serious: Yes (Other)
  Sender: FDA-Public Use
  Company Number: JP-GE HEALTHCARE MEDICAL DIAGNOSTICS-OMPQ-NO-1306S-0774

PATIENT
  Age: 66 Year
  Sex: Male

DRUGS (3)
  1. OMNIPAQUE [Suspect]
     Indication: VASCULAR SHUNT
     Route: 065
     Dates: start: 20130423, end: 20130423
  2. OMNIPAQUE [Suspect]
     Indication: DIAGNOSTIC PROCEDURE
  3. SOLU MEDROL [Concomitant]

REACTIONS (3)
  - Blister [Unknown]
  - Skin exfoliation [Unknown]
  - Pruritus [Unknown]
